FAERS Safety Report 10220277 (Version 1)
Quarter: 2014Q2

REPORT INFORMATION
  Report Type: Spontaneous
  Country: AT (occurrence: AT)
  Receive Date: 20140606
  Receipt Date: 20140606
  Transmission Date: 20141212
  Serious: Yes (Hospitalization, Other)
  Sender: FDA-Public Use
  Company Number: AT-ROCHE-1413454

PATIENT
  Age: 51 Year
  Sex: Male

DRUGS (3)
  1. XOLAIR [Suspect]
     Indication: ASTHMA
     Route: 058
     Dates: start: 20140310, end: 20140505
  2. SYMBICORT [Concomitant]
  3. BETNESOL [Concomitant]

REACTIONS (4)
  - Influenza like illness [Recovered/Resolved]
  - Myalgia [Recovered/Resolved]
  - Pharyngitis [Recovered/Resolved]
  - Feeling abnormal [Unknown]
